FAERS Safety Report 6483552-X (Version None)
Quarter: 2009Q4

REPORT INFORMATION
  Report Type: 
  Country: None (occurrence: None)
  Receive Date: 20091208
  Receipt Date: 20091208
  Transmission Date: 20100525
  Serious: Yes (Hospitalization)
  Sender: FDA-Public Use
  Company Number: None

PATIENT
  Age: 51 Year
  Sex: Male
  Weight: 100.7 kg

DRUGS (2)
  1. CYCLOBENZAPRINE [Suspect]
     Indication: MUSCLE RELAXANT THERAPY
     Dosage: 10 MG TID PO
     Route: 048
     Dates: start: 20090715, end: 20090818
  2. DISULFIRAM [Suspect]
     Indication: ALCOHOLISM
     Dosage: 250 MG EVERY DAY PO
     Route: 048
     Dates: start: 20090724, end: 20090815

REACTIONS (1)
  - CONVULSION [None]
